FAERS Safety Report 9075236 (Version 1)
Quarter: 2013Q1

REPORT INFORMATION
  Report Type: Spontaneous
  Country: US (occurrence: US)
  Receive Date: 20130129
  Receipt Date: 20130129
  Transmission Date: 20140127
  Serious: Yes (Other)
  Sender: FDA-Public Use
  Company Number: US-BAYER-2013-007415

PATIENT
  Age: 79 Year
  Sex: Female

DRUGS (2)
  1. BAYER ASPIRIN REGIMEN ADULT LOW STRENGTH [Suspect]
  2. COLACE [Suspect]
     Indication: CONSTIPATION
     Dosage: 100 MG, QD
     Dates: start: 201301

REACTIONS (1)
  - Hallucination [None]
